FAERS Safety Report 10046076 (Version 2)
Quarter: 2014Q2

REPORT INFORMATION
  Report Type: Report from Study
  Country: US (occurrence: US)
  Receive Date: 20140331
  Receipt Date: 20140417
  Transmission Date: 20141212
  Serious: Yes (Other)
  Sender: FDA-Public Use
  Company Number: US-ROCHE-1369254

PATIENT
  Sex: Male
  Weight: 10.44 kg

DRUGS (3)
  1. NUTROPIN [Suspect]
     Indication: RENAL FAILURE CHRONIC
     Route: 058
     Dates: start: 20130829
  2. CALCITROL [Concomitant]
     Dosage: 1 ML
     Route: 048
  3. PROCRIT [Concomitant]

REACTIONS (3)
  - Renal impairment [Unknown]
  - Blood creatinine increased [Unknown]
  - Scoliosis [Unknown]
